FAERS Safety Report 8560132-3 (Version None)
Quarter: 2012Q2

REPORT INFORMATION
  Report Type: 
  Country: None (occurrence: None)
  Receive Date: 20120418
  Receipt Date: 20110528
  Transmission Date: 20120825
  Serious: Yes (Other)
  Sender: FDA-Public Use
  Company Number: PHHY2011US25273

PATIENT
  Age: 58 Year
  Sex: Female

DRUGS (2)
  1. TRICOR [Concomitant]
  2. DIOVAN [Suspect]
     Dosage: 160 MG, QD

REACTIONS (8)
  - VOMITING [None]
  - BLOOD PRESSURE INCREASED [None]
  - MALAISE [None]
  - DIZZINESS [None]
  - DYSSTASIA [None]
  - NAUSEA [None]
  - BALANCE DISORDER [None]
  - APHAGIA [None]
